FAERS Safety Report 13470178 (Version 1)
Quarter: 2017Q2

REPORT INFORMATION
  Report Type: Spontaneous
  Country: US (occurrence: US)
  Receive Date: 20170423
  Receipt Date: 20170423
  Transmission Date: 20170830
  Serious: No
  Sender: FDA-Public Use
  Company Number: US-ASTRAZENECA-2017SE39543

PATIENT
  Age: 66 Year
  Sex: Female

DRUGS (7)
  1. QUETIAPINE FUMARATE. [Suspect]
     Active Substance: QUETIAPINE FUMARATE
     Indication: DEPRESSION
     Route: 048
  2. QUETIAPINE FUMARATE. [Suspect]
     Active Substance: QUETIAPINE FUMARATE
     Indication: SCHIZOPHRENIA
     Route: 048
  3. QUETIAPINE FUMARATE. [Suspect]
     Active Substance: QUETIAPINE FUMARATE
     Indication: DEPRESSION
     Route: 048
  4. LOMERIZINE [Concomitant]
     Active Substance: LOMERIZINE
     Indication: SEIZURE
     Route: 065
  5. LOMERIZINE [Concomitant]
     Active Substance: LOMERIZINE
     Indication: SCHIZOPHRENIA
     Route: 065
  6. QUETIAPINE FUMARATE. [Suspect]
     Active Substance: QUETIAPINE FUMARATE
     Indication: SCHIZOPHRENIA
     Route: 048
  7. OLANZAPINE. [Concomitant]
     Active Substance: OLANZAPINE
     Route: 065

REACTIONS (5)
  - Hypomania [Unknown]
  - Nightmare [Unknown]
  - Fatigue [Unknown]
  - Hypokinesia [Unknown]
  - Insomnia [Unknown]
